FAERS Safety Report 7793726-3 (Version None)
Quarter: 2011Q4

REPORT INFORMATION
  Report Type: 
  Country: None (occurrence: None)
  Receive Date: 20111003
  Receipt Date: 20110908
  Transmission Date: 20120403
  Serious: Yes (Other)
  Sender: FDA-Public Use
  Company Number: IT-ABBOTT-11P-083-0852913-00

PATIENT
  Age: 23 Year
  Sex: Male

DRUGS (14)
  1. BETAMETHASONE [Concomitant]
     Indication: PRODUCT USED FOR UNKNOWN INDICATION
  2. HALOPERIDOL [Concomitant]
     Indication: PRODUCT USED FOR UNKNOWN INDICATION
  3. CLOZAPINE [Interacting]
     Dosage: DAILY
     Route: 065
     Dates: start: 20101001
  4. CLONAZEPAM [Concomitant]
     Indication: PRODUCT USED FOR UNKNOWN INDICATION
  5. DIAZEPAM [Concomitant]
     Indication: PRODUCT USED FOR UNKNOWN INDICATION
     Dates: start: 20101001
  6. RISPERIDONE [Suspect]
     Indication: SCHIZOPHRENIA
     Dosage: DAILY
     Route: 065
  7. RISPERIDONE [Suspect]
     Dosage: DAILY
     Route: 065
     Dates: start: 20101001
  8. CLOZAPINE [Interacting]
     Indication: SCHIZOPHRENIA
     Route: 065
  9. AMISULPRIDE [Concomitant]
     Indication: PRODUCT USED FOR UNKNOWN INDICATION
  10. AMOXICILLIN [Concomitant]
     Indication: PRODUCT USED FOR UNKNOWN INDICATION
  11. ACETYLCYSTEINE [Concomitant]
     Indication: PRODUCT USED FOR UNKNOWN INDICATION
  12. VALPROIC ACID [Interacting]
     Indication: SCHIZOPHRENIA
     Dosage: DAILY
     Route: 065
  13. CLOZAPINE [Interacting]
     Dosage: DAILY
     Route: 065
     Dates: end: 20100601
  14. ARIPIPRAZOLE [Concomitant]
     Indication: PRODUCT USED FOR UNKNOWN INDICATION

REACTIONS (7)
  - BODY DYSMORPHIC DISORDER [None]
  - PSYCHOTIC DISORDER [None]
  - DRUG INTERACTION [None]
  - THINKING ABNORMAL [None]
  - SPEECH DISORDER [None]
  - DRUG LEVEL DECREASED [None]
  - SELF INJURIOUS BEHAVIOUR [None]
